FAERS Safety Report 7269195-9 (Version None)
Quarter: 2011Q1

REPORT INFORMATION
  Report Type: 
  Country: None (occurrence: None)
  Receive Date: 20110119
  Receipt Date: 20091028
  Transmission Date: 20110831
  Serious: Yes (Life-Threatening, Other)
  Sender: FDA-Public Use
  Company Number: AEUSA200900303

PATIENT
  Age: 56 Year
  Sex: Female
  Weight: 74.8435 kg

DRUGS (3)
  1. HYPERTET [Suspect]
     Indication: INFECTION PROPHYLAXIS
     Dosage: 250 IU; 1X; IM
     Route: 030
     Dates: start: 20091027, end: 20091027
  2. TYLENOL (CAPLET) [Concomitant]
  3. EPIPEN /00003902/ [Concomitant]

REACTIONS (2)
  - ANGIOEDEMA [None]
  - ANAPHYLACTIC REACTION [None]
